FAERS Safety Report 8212140-X (Version None)
Quarter: 2012Q1

REPORT INFORMATION
  Report Type: 
  Country: None (occurrence: None)
  Receive Date: 20120315
  Receipt Date: 20120313
  Transmission Date: 20120608
  Serious: Yes (Other)
  Sender: FDA-Public Use
  Company Number: PHEH2012US005727

PATIENT
  Sex: Female

DRUGS (7)
  1. OXYCODONE HCL [Suspect]
  2. XANAX [Concomitant]
  3. ZOLOFT [Concomitant]
  4. RECLAST [Suspect]
     Dosage: UNK UKN, UNK
     Route: 042
     Dates: start: 20120126
  5. MULTI-VITAMINS [Concomitant]
  6. VITAMIN D [Suspect]
  7. CALCIUM [Concomitant]

REACTIONS (2)
  - CELLULITIS [None]
  - ARTHRALGIA [None]
